FAERS Safety Report 8909232 (Version 1)
Quarter: 2012Q4

REPORT INFORMATION
  Report Type: Spontaneous
  Country: BE (occurrence: None)
  Receive Date: 20121107
  Receipt Date: 20121107
  Transmission Date: 20130627
  Serious: Yes (Hospitalization, Other)
  Sender: FDA-Public Use
  Company Number: 2012MA012717

PATIENT
  Age: 26 Year
  Sex: Male

DRUGS (7)
  1. LORAZEPAM [Suspect]
  2. TRAZODONE [Suspect]
     Indication: ANTIDEPRESSANT THERAPY
  3. CLOTIAPINE [Suspect]
  4. LAMOTRIGINE (LAMOTRIGINE) [Suspect]
     Indication: EPILEPSY
  5. ESCITALOPRAM [Suspect]
  6. QUETIAPINE [Suspect]
     Indication: PSYCHOSIS
  7. ZUCLOPENTHIXOL [Suspect]
     Indication: PSYCHOSIS
     Dosage: q2w

REACTIONS (5)
  - Overdose [None]
  - Constipation [None]
  - Colitis ulcerative [None]
  - Necrotising colitis [None]
  - Toxicity to various agents [None]
